FAERS Safety Report 4923490-4 (Version None)
Quarter: 2006Q1

REPORT INFORMATION
  Report Type: 
  Country: None (occurrence: None)
  Receive Date: 20060227
  Receipt Date: 20060217
  Transmission Date: 20060701
  Serious: Yes (Disabling)
  Sender: FDA-Public Use
  Company Number: PHHO2006GB02880

PATIENT
  Age: 55 Year
  Sex: Female

DRUGS (5)
  1. ZOLEDRONATE [Suspect]
     Indication: METASTASES TO BONE
     Dosage: 4 MG
     Route: 042
     Dates: start: 20050517
  2. CHEMOTHERAPEUTICS,OTHER [Suspect]
     Indication: BREAST CANCER
     Dosage: UNK, UNK
  3. CALCIUM GLUCONATE [Concomitant]
     Indication: METASTASES TO BONE
     Dosage: 500 MEQ, QD
     Route: 048
  4. VITAMIN D [Concomitant]
     Indication: METASTASES TO BONE
     Dosage: 400-500  IU, QD
     Route: 048
  5. STEROIDS NOS [Suspect]
     Indication: BREAST CANCER

REACTIONS (1)
  - OSTEONECROSIS [None]
